FAERS Safety Report 19179022 (Version 2)
Quarter: 2021Q2

REPORT INFORMATION
  Report Type: Report from Study
  Country: CR (occurrence: CR)
  Receive Date: 20210426
  Receipt Date: 20210505
  Transmission Date: 20210717
  Serious: Yes (Other)
  Sender: FDA-Public Use
  Company Number: NVSC2020CR220038

PATIENT
  Sex: Female

DRUGS (3)
  1. SCAPHO [Suspect]
     Active Substance: SECUKINUMAB
     Dosage: UNK
     Route: 065
     Dates: start: 202008
  2. SCAPHO [Suspect]
     Active Substance: SECUKINUMAB
     Indication: ANKYLOSING SPONDYLITIS
     Dosage: 150 MG, QMO
     Route: 058
     Dates: start: 20200604
  3. FLUCONAZOLE. [Suspect]
     Active Substance: FLUCONAZOLE
     Indication: PRODUCT USED FOR UNKNOWN INDICATION
     Dosage: UNK
     Route: 065

REACTIONS (25)
  - Rotavirus infection [Unknown]
  - Cough [Recovering/Resolving]
  - Eye pruritus [Recovering/Resolving]
  - Bronchial disorder [Recovering/Resolving]
  - Burning sensation [Unknown]
  - Muscle disorder [Unknown]
  - Bursitis [Unknown]
  - Rhinitis [Recovering/Resolving]
  - Gastritis [Recovering/Resolving]
  - Reflux gastritis [Recovering/Resolving]
  - Pain [Recovering/Resolving]
  - Drug-induced liver injury [Unknown]
  - Illness [Unknown]
  - Oral candidiasis [Not Recovered/Not Resolved]
  - Swelling [Recovering/Resolving]
  - Arthralgia [Recovering/Resolving]
  - Polymerase chain reaction [Recovering/Resolving]
  - C-reactive protein abnormal [Unknown]
  - Hypersensitivity [Unknown]
  - Drug hypersensitivity [Unknown]
  - Fear [Recovering/Resolving]
  - Anxiety [Unknown]
  - Dyspnoea [Recovering/Resolving]
  - Inflammation [Unknown]
  - Tendonitis [Unknown]
